FAERS Safety Report 14126667 (Version 9)
Quarter: 2019Q3

REPORT INFORMATION
  Report Type: Report from Study
  Country: US (occurrence: CA)
  Receive Date: 20171025
  Receipt Date: 20190705
  Transmission Date: 20191004
  Serious: Yes (Hospitalization, Other)
  Sender: FDA-Public Use
  Company Number: US-SUNOVION-2017SUN004623

PATIENT
  Age: 56 Year
  Sex: Female

DRUGS (15)
  1. XOLAIR [Suspect]
     Active Substance: OMALIZUMAB
     Dosage: 225 MG, BIW
     Route: 058
     Dates: start: 20181016
  2. MONTELUKAST [Concomitant]
     Active Substance: MONTELUKAST SODIUM
     Indication: PRODUCT USED FOR UNKNOWN INDICATION
     Dosage: 1 DF, QD
     Route: 048
     Dates: start: 201405
  3. XOLAIR [Suspect]
     Active Substance: OMALIZUMAB
     Dosage: 225 MG, BIW
     Route: 058
     Dates: start: 20180529
  4. ZENHALE [Concomitant]
     Active Substance: FORMOTEROL FUMARATE\MOMETASONE FUROATE
     Dosage: 2 DF, UNK
     Route: 065
     Dates: start: 201611
  5. XOLAIR [Suspect]
     Active Substance: OMALIZUMAB
     Indication: ASTHMA
     Dosage: 225 MG, BIW
     Dates: start: 20181228
  6. XOLAIR [Suspect]
     Active Substance: OMALIZUMAB
     Dosage: 225 MG, BIW
     Route: 058
     Dates: start: 20171013
  7. ZENHALE [Concomitant]
     Active Substance: FORMOTEROL FUMARATE\MOMETASONE FUROATE
     Indication: PRODUCT USED FOR UNKNOWN INDICATION
     Dosage: 5 ?G, UNK
     Route: 065
     Dates: start: 201611
  8. XOLAIR [Suspect]
     Active Substance: OMALIZUMAB
     Dosage: 225 MG
     Route: 058
     Dates: start: 20190611
  9. GLYCOPYRROLATE. [Suspect]
     Active Substance: GLYCOPYRROLATE
     Indication: ASTHMA
     Dosage: 2 DF, QD  (50UG)
     Route: 055
     Dates: start: 201611
  10. XOLAIR [Suspect]
     Active Substance: OMALIZUMAB
     Dosage: 225 MG, BIW
     Route: 058
     Dates: start: 20180807
  11. CORTISONE [Concomitant]
     Active Substance: CORTISONE
     Indication: PNEUMONIA
     Dosage: TWICE
     Route: 065
     Dates: start: 201810
  12. XOLAIR [Suspect]
     Active Substance: OMALIZUMAB
     Dosage: UNK
     Route: 058
     Dates: start: 20171222
  13. VENTOLIN [Concomitant]
     Active Substance: ALBUTEROL SULFATE
     Indication: PRODUCT USED FOR UNKNOWN INDICATION
     Dosage: 100 ?G, UNK
     Route: 055
     Dates: start: 1990
  14. VENTOLIN [Concomitant]
     Active Substance: ALBUTEROL SULFATE
     Dosage: 2 DF, UNK
     Route: 055
     Dates: start: 1990
  15. CORTISONE [Concomitant]
     Active Substance: CORTISONE
     Dosage: UNK
     Dates: start: 201901

REACTIONS (23)
  - Pneumonia [Unknown]
  - Dyspnoea [Not Recovered/Not Resolved]
  - Blood pressure increased [Recovering/Resolving]
  - Nasal congestion [Unknown]
  - Asthma [Recovering/Resolving]
  - Anxiety [Unknown]
  - Cough [Not Recovered/Not Resolved]
  - Salivary hypersecretion [Unknown]
  - Upper respiratory tract inflammation [Unknown]
  - Nasal inflammation [Unknown]
  - Quality of life decreased [Unknown]
  - Overweight [Unknown]
  - Lung infection [Not Recovered/Not Resolved]
  - Nasopharyngitis [Not Recovered/Not Resolved]
  - Headache [Unknown]
  - Productive cough [Unknown]
  - Malaise [Unknown]
  - Dyspnoea exertional [Unknown]
  - Oropharyngeal pain [Unknown]
  - Pyrexia [Unknown]
  - Pulmonary function test decreased [Unknown]
  - Hypersensitivity [Unknown]
  - Sinusitis [Recovering/Resolving]

NARRATIVE: CASE EVENT DATE: 201705
